FAERS Safety Report 12336470 (Version 1)
Quarter: 2016Q2

REPORT INFORMATION
  Report Type: Report from Study
  Country: US (occurrence: US)
  Receive Date: 20160505
  Receipt Date: 20160505
  Transmission Date: 20160815
  Serious: Yes (Other)
  Sender: FDA-Public Use
  Company Number: US-AMGEN-USASL2016055590

PATIENT
  Age: 76 Year
  Sex: Female

DRUGS (1)
  1. ENBREL [Suspect]
     Active Substance: ETANERCEPT
     Indication: PRODUCT USED FOR UNKNOWN INDICATION
     Dosage: UNK
     Route: 065
     Dates: start: 20151130

REACTIONS (7)
  - Cerebrovascular accident [Unknown]
  - Confusional state [Unknown]
  - Peripheral swelling [Unknown]
  - Mobility decreased [Unknown]
  - Pulmonary thrombosis [Unknown]
  - Depressed mood [Unknown]
  - Malaise [Unknown]

NARRATIVE: CASE EVENT DATE: 2015
